FAERS Safety Report 23732167 (Version 1)
Quarter: 2024Q2

REPORT INFORMATION
  Report Type: Spontaneous
  Country: US (occurrence: None)
  Receive Date: 20240410
  Receipt Date: 20240410
  Transmission Date: 20240716
  Serious: No
  Sender: FDA-Public Use
  Company Number: None

PATIENT
  Age: 73 Year
  Sex: Male

DRUGS (10)
  1. KEYTRUDA [Suspect]
     Active Substance: PEMBROLIZUMAB
     Indication: Non-small cell lung cancer
     Route: 042
  2. OXYGEN [Concomitant]
     Active Substance: OXYGEN
  3. PREDNISONE [Concomitant]
     Active Substance: PREDNISONE
  4. UNSPECIFIED INGREDIENT [Concomitant]
     Active Substance: UNSPECIFIED INGREDIENT
  5. diaphorecit pill (lasicks) [Concomitant]
  6. BACTRIM [Concomitant]
     Active Substance: SULFAMETHOXAZOLE\TRIMETHOPRIM
  7. FUROSEMIDE [Concomitant]
     Active Substance: FUROSEMIDE
  8. ALBUTEROL [Concomitant]
     Active Substance: ALBUTEROL
  9. ACETAMINOPHEN [Concomitant]
     Active Substance: ACETAMINOPHEN
  10. IBUPROFEN [Concomitant]
     Active Substance: IBUPROFEN

REACTIONS (14)
  - Dyspnoea [None]
  - Peripheral swelling [None]
  - Rash [None]
  - Cough [None]
  - Pneumonitis [None]
  - Dyspnoea exertional [None]
  - Chest discomfort [None]
  - Muscular weakness [None]
  - Hypoaesthesia [None]
  - Paraesthesia [None]
  - Decreased appetite [None]
  - Thirst [None]
  - Non-small cell lung cancer [None]
  - Condition aggravated [None]

NARRATIVE: CASE EVENT DATE: 20231230
